FAERS Safety Report 5365059-6 (Version None)
Quarter: 2007Q2

REPORT INFORMATION
  Report Type: 
  Country: None (occurrence: None)
  Receive Date: 20070621
  Receipt Date: 20070614
  Transmission Date: 20071010
  Serious: Yes (Hospitalization)
  Sender: FDA-Public Use
  Company Number: BR-AVENTIS-200712955EU

PATIENT
  Age: 78 Year
  Sex: Male

DRUGS (3)
  1. LASIX [Suspect]
     Dosage: DOSE: 1 TAB
     Route: 048
     Dates: start: 20070531, end: 20070601
  2. LASIX [Suspect]
     Route: 042
     Dates: start: 20070612
  3. GARDENALE                          /00023202/ [Concomitant]
     Indication: CONVULSION
     Dosage: DOSE: 1 TAB
     Route: 048

REACTIONS (4)
  - MOTOR DYSFUNCTION [None]
  - SOMNOLENCE [None]
  - SPEECH DISORDER [None]
  - TREMOR [None]
